FAERS Safety Report 10541277 (Version 3)
Quarter: 2015Q1

REPORT INFORMATION
  Report Type: Report from Study
  Country: BR (occurrence: BR)
  Receive Date: 20141024
  Receipt Date: 20150115
  Transmission Date: 20150720
  Serious: Yes (Other)
  Sender: FDA-Public Use
  Company Number: PHHY2012BR114653

PATIENT
  Sex: Female
  Weight: 66 kg

DRUGS (6)
  1. SANDOSTATIN LAR DEPOT [Suspect]
     Active Substance: OCTREOTIDE ACETATE
     Indication: GIGANTISM
     Dosage: 20 MG, QMO
     Route: 030
  2. SOMAVERT [Suspect]
     Active Substance: PEGVISOMANT
     Indication: GIGANTISM
     Dosage: 10 MG, BID
     Route: 030
  3. CABERGOLINE. [Suspect]
     Active Substance: CABERGOLINE
     Indication: GIGANTISM
     Dosage: 1 DF, QD
     Route: 048
  4. SOMAVERT [Suspect]
     Active Substance: PEGVISOMANT
     Indication: ADENOMA BENIGN
     Dosage: 20 MG, QD
     Route: 030
  5. SANDOSTATIN LAR DEPOT [Suspect]
     Active Substance: OCTREOTIDE ACETATE
     Indication: PITUITARY TUMOUR BENIGN
  6. CABERGOLINE. [Suspect]
     Active Substance: CABERGOLINE
     Indication: ADENOMA BENIGN

REACTIONS (13)
  - Anger [Recovered/Resolved]
  - Product use issue [Unknown]
  - Muscle spasms [Unknown]
  - Syncope [Recovered/Resolved]
  - Dyspnoea [Recovered/Resolved]
  - Dysmenorrhoea [Recovering/Resolving]
  - Nervousness [Recovered/Resolved]
  - Arthralgia [Not Recovered/Not Resolved]
  - Chest pain [Recovering/Resolving]
  - Weight decreased [Recovered/Resolved]
  - Menorrhagia [Recovering/Resolving]
  - Malaise [Recovered/Resolved]
  - Arrhythmia [Recovered/Resolved]
